FAERS Safety Report 23332589 (Version 1)
Quarter: 2023Q4

REPORT INFORMATION
  Report Type: Spontaneous
  Country: RO (occurrence: RO)
  Receive Date: 20231222
  Receipt Date: 20231222
  Transmission Date: 20240110
  Serious: Yes (Other)
  Sender: FDA-Public Use
  Company Number: RO-PFIZER INC-PV202300140934

PATIENT
  Age: 68 Year
  Sex: Male

DRUGS (3)
  1. SUNITINIB MALATE [Suspect]
     Active Substance: SUNITINIB MALATE
     Indication: Metastatic renal cell carcinoma
     Dosage: 37.5 MG, CYCLIC (FOUR CONSECUTIVE WEEKS OF THERAPY FOLLOWED BY 2 WEEKS OF DISCONTINUATION)
     Route: 048
  2. SUNITINIB MALATE [Suspect]
     Active Substance: SUNITINIB MALATE
     Dosage: 37.5 MG, CYCLIC (FOUR CONSECUTIVE WEEKS OF THERAPY FOLLOWED BY 2 WEEKS OF DISCONTINUATION)
     Route: 048
  3. ZOLEDRONIC ACID [Suspect]
     Active Substance: ZOLEDRONIC ACID
     Indication: Product used for unknown indication
     Dosage: UNK
     Route: 042

REACTIONS (3)
  - Actinomycosis [Unknown]
  - Jaw fistula [Unknown]
  - Osteonecrosis of jaw [Unknown]
